FAERS Safety Report 21462201 (Version 2)
Quarter: 2022Q4

REPORT INFORMATION
  Report Type: Spontaneous
  Country: CA (occurrence: CA)
  Receive Date: 20221016
  Receipt Date: 20221026
  Transmission Date: 20230112
  Serious: Yes (Hospitalization, Other)
  Sender: FDA-Public Use
  Company Number: CA-drreddys-LIT/CAN/22/0155752

PATIENT
  Age: 45 Year
  Sex: Female

DRUGS (7)
  1. FONDAPARINUX [Suspect]
     Active Substance: FONDAPARINUX
     Indication: Ventricular tachycardia
  2. AMIODARONE [Suspect]
     Active Substance: AMIODARONE
     Indication: Ventricular tachycardia
  3. ASPIRIN [Suspect]
     Active Substance: ASPIRIN
     Indication: Ventricular tachycardia
  4. METOPROLOL [Suspect]
     Active Substance: METOPROLOL
     Indication: Ventricular tachycardia
  5. PREDNISONE [Suspect]
     Active Substance: PREDNISONE
     Indication: Ventricular tachycardia
  6. RAMIPRIL [Suspect]
     Active Substance: RAMIPRIL
     Indication: Ventricular tachycardia
  7. TICAGRELOR [Suspect]
     Active Substance: TICAGRELOR
     Indication: Ventricular tachycardia

REACTIONS (1)
  - Hypersensitivity myocarditis [Recovered/Resolved]
